FAERS Safety Report 10029141 (Version 1)
Quarter: 2014Q1

REPORT INFORMATION
  Report Type: Spontaneous
  Country: NL (occurrence: NL)
  Receive Date: 20140321
  Receipt Date: 20140321
  Transmission Date: 20141002
  Serious: Yes (Other)
  Sender: FDA-Public Use
  Company Number: NL-MERCK-1403NLD010400

PATIENT
  Age: 67 Year
  Sex: Female
  Weight: 65 kg

DRUGS (4)
  1. JANUVIA [Suspect]
     Indication: DIABETES MELLITUS
     Dosage: 100 MG, QD, 1DD1
     Route: 048
     Dates: start: 20130528, end: 20140303
  2. METFORMIN HYDROCHLORIDE [Concomitant]
     Indication: DIABETES MELLITUS
     Dosage: 1 DF, QD
     Route: 048
  3. ATENOLOL [Concomitant]
     Dosage: 1 DF, UNK
     Route: 048
  4. OMEPRAZOLE [Concomitant]
     Dosage: 1 DF, UNK
     Route: 048

REACTIONS (4)
  - Dizziness [Unknown]
  - Chest pain [Unknown]
  - Diarrhoea [Unknown]
  - Back pain [Unknown]
